FAERS Safety Report 16561228 (Version 4)
Quarter: 2020Q3

REPORT INFORMATION
  Report Type: Spontaneous
  Country: CA (occurrence: CA)
  Receive Date: 20190711
  Receipt Date: 20200717
  Transmission Date: 20201102
  Serious: Yes (Disabling, Other)
  Sender: FDA-Public Use
  Company Number: CA-TAKEDA-2019TUS041893

PATIENT
  Age: 41 Year
  Sex: Male
  Weight: 90 kg

DRUGS (47)
  1. APO?LEFLUNOMIDE [Suspect]
     Active Substance: LEFLUNOMIDE
     Dosage: UNK
     Route: 048
  2. CICLOSPORIN [Suspect]
     Active Substance: CYCLOSPORINE
     Indication: PSORIATIC ARTHROPATHY
     Dosage: UNK
     Route: 048
  3. ENBREL [Suspect]
     Active Substance: ETANERCEPT
     Indication: RHEUMATOID ARTHRITIS
     Dosage: UNK
     Route: 058
  4. ENBREL [Suspect]
     Active Substance: ETANERCEPT
     Indication: PSORIASIS
  5. MOTRIN [Suspect]
     Active Substance: IBUPROFEN
     Indication: PRODUCT USED FOR UNKNOWN INDICATION
     Dosage: 600 MILLIGRAM, QD
     Route: 048
  6. OTEZLA [Suspect]
     Active Substance: APREMILAST
     Indication: PSORIATIC ARTHROPATHY
     Dosage: 30 MILLIGRAM, BID
     Route: 048
  7. SULFASALAZINE. [Suspect]
     Active Substance: SULFASALAZINE
     Indication: PRODUCT USED FOR UNKNOWN INDICATION
     Dosage: 500 MILLIGRAM
     Route: 065
  8. METHOTREXATE. [Suspect]
     Active Substance: METHOTREXATE
     Dosage: UNK UNK, 1/WEEK
     Route: 065
  9. REMICADE [Suspect]
     Active Substance: INFLIXIMAB
     Indication: PSORIATIC ARTHROPATHY
     Dosage: UNK
     Route: 042
  10. SULFAMETHOXAZOLE [Suspect]
     Active Substance: SULFAMETHOXAZOLE
     Indication: PRODUCT USED FOR UNKNOWN INDICATION
     Dosage: 600 MILLIGRAM
     Route: 065
  11. COLCHICINE. [Suspect]
     Active Substance: COLCHICINE
     Indication: PSORIATIC ARTHROPATHY
     Dosage: 0.6 MILLIGRAM
     Route: 048
  12. ULORIC [Suspect]
     Active Substance: FEBUXOSTAT
     Dosage: 10 MILLIGRAM
     Route: 048
  13. SIMPONI [Suspect]
     Active Substance: GOLIMUMAB
     Indication: PSORIATIC ARTHROPATHY
     Dosage: UNK
     Route: 058
  14. MOGADON [Suspect]
     Active Substance: NITRAZEPAM
     Indication: PRODUCT USED FOR UNKNOWN INDICATION
     Dosage: 5 MILLIGRAM
     Route: 065
  15. OXYCODONE HYDROCHLORIDE. [Suspect]
     Active Substance: OXYCODONE HYDROCHLORIDE
     Dosage: 40 MILLIGRAM
     Route: 065
  16. FEBUXOSTAT. [Suspect]
     Active Substance: FEBUXOSTAT
     Indication: PRODUCT USED FOR UNKNOWN INDICATION
     Dosage: 8 MILLIGRAM
     Route: 065
  17. FEBUXOSTAT. [Suspect]
     Active Substance: FEBUXOSTAT
     Dosage: 80 MILLIGRAM, BID
     Route: 065
  18. CIMZIA [Suspect]
     Active Substance: CERTOLIZUMAB PEGOL
     Indication: PSORIATIC ARTHROPATHY
     Dosage: UNK
     Route: 058
  19. HUMIRA [Suspect]
     Active Substance: ADALIMUMAB
     Indication: PSORIATIC ARTHROPATHY
     Dosage: UNK
     Route: 058
  20. MOTRIN [Suspect]
     Active Substance: IBUPROFEN
     Dosage: 600 MILLIGRAM, QD
     Route: 065
  21. OTEZLA [Suspect]
     Active Substance: APREMILAST
     Indication: RHEUMATOID ARTHRITIS
  22. SULFASALAZINE. [Suspect]
     Active Substance: SULFASALAZINE
     Dosage: 10 MILLIGRAM
     Route: 005
  23. METHOTREXATE. [Suspect]
     Active Substance: METHOTREXATE
     Indication: RHEUMATOID ARTHRITIS
     Dosage: 2.5 MILLIGRAM, 1/WEEK
     Route: 065
  24. BENADRYL [Suspect]
     Active Substance: DIPHENHYDRAMINE HYDROCHLORIDE
     Indication: PRODUCT USED FOR UNKNOWN INDICATION
     Dosage: UNK
     Route: 065
  25. ADALIMUMAB [Suspect]
     Active Substance: ADALIMUMAB
     Indication: PSORIATIC ARTHROPATHY
     Dosage: UNK
     Route: 058
  26. ULORIC [Suspect]
     Active Substance: FEBUXOSTAT
     Indication: PSORIATIC ARTHROPATHY
     Dosage: 80 MILLIGRAM, QD
     Route: 048
  27. DEXILANT [Suspect]
     Active Substance: DEXLANSOPRAZOLE
     Indication: PRODUCT USED FOR UNKNOWN INDICATION
     Dosage: UNK
     Route: 065
  28. APREMILAST [Suspect]
     Active Substance: APREMILAST
     Indication: PSORIASIS
  29. GRAVOL [Concomitant]
     Active Substance: DIMENHYDRINATE
     Dosage: UNK
     Route: 065
  30. ULORIC [Suspect]
     Active Substance: FEBUXOSTAT
     Dosage: 80 MILLIGRAM, BID
     Route: 048
  31. ENBREL [Suspect]
     Active Substance: ETANERCEPT
     Indication: PSORIATIC ARTHROPATHY
  32. STELARA [Suspect]
     Active Substance: USTEKINUMAB
     Indication: PSORIATIC ARTHROPATHY
     Dosage: 10 MILLIGRAM
     Route: 058
  33. SULFASALAZINE. [Suspect]
     Active Substance: SULFASALAZINE
     Dosage: 500 MILLIGRAM
     Route: 065
  34. INFLIXIMAB [Suspect]
     Active Substance: INFLIXIMAB
     Indication: PSORIATIC ARTHROPATHY
     Dosage: UNK
     Route: 065
  35. IBUPROFEN. [Suspect]
     Active Substance: IBUPROFEN
     Indication: PRODUCT USED FOR UNKNOWN INDICATION
     Dosage: 600 MILLIGRAM
     Route: 048
  36. FOLIC ACID. [Suspect]
     Active Substance: FOLIC ACID
     Indication: PSORIATIC ARTHROPATHY
     Dosage: UNK
     Route: 065
  37. OXYCODONE HYDROCHLORIDE. [Suspect]
     Active Substance: OXYCODONE HYDROCHLORIDE
     Indication: PRODUCT USED FOR UNKNOWN INDICATION
     Dosage: 10 MILLIGRAM
     Route: 065
  38. APO?LEFLUNOMIDE [Suspect]
     Active Substance: LEFLUNOMIDE
     Indication: RHEUMATOID ARTHRITIS
     Dosage: UNK
     Route: 065
  39. ORENCIA [Suspect]
     Active Substance: ABATACEPT
     Indication: PSORIATIC ARTHROPATHY
     Dosage: UNK
     Route: 058
  40. METHOTREXATE. [Suspect]
     Active Substance: METHOTREXATE
     Dosage: 10 MILLIGRAM, 1/WEEK
     Route: 065
  41. NITRAZEPAM [Suspect]
     Active Substance: NITRAZEPAM
     Indication: PRODUCT USED FOR UNKNOWN INDICATION
     Dosage: 5 MILLIGRAM
     Route: 065
  42. MOGADON [Suspect]
     Active Substance: NITRAZEPAM
     Dosage: 5 MILLIGRAM
     Route: 048
  43. APREMILAST [Suspect]
     Active Substance: APREMILAST
     Indication: RHEUMATOID ARTHRITIS
     Dosage: 30 MILLIGRAM, BID
     Route: 048
  44. APREMILAST [Suspect]
     Active Substance: APREMILAST
     Indication: PSORIATIC ARTHROPATHY
  45. APO?IBUPROFEN [Suspect]
     Active Substance: IBUPROFEN
     Indication: PRODUCT USED FOR UNKNOWN INDICATION
     Dosage: 600 MILLIGRAM
     Route: 048
  46. OTEZLA [Suspect]
     Active Substance: APREMILAST
     Indication: PSORIASIS
  47. CERTOLIZUMAB PEGOL [Suspect]
     Active Substance: CERTOLIZUMAB PEGOL
     Indication: PSORIATIC ARTHROPATHY
     Dosage: UNK
     Route: 058

REACTIONS (30)
  - Drug hypersensitivity [Unknown]
  - Tenosynovitis [Unknown]
  - Headache [Unknown]
  - C-reactive protein abnormal [Unknown]
  - C-reactive protein increased [Unknown]
  - Nausea [Unknown]
  - Off label use [Unknown]
  - Tendonitis [Unknown]
  - Contraindicated product administered [Unknown]
  - Drug intolerance [Unknown]
  - Fatigue [Unknown]
  - Hepatic enzyme increased [Unknown]
  - Infection [Unknown]
  - Synovitis [Unknown]
  - Hypersensitivity [Unknown]
  - Mucosal inflammation [Unknown]
  - Pain [Unknown]
  - Tongue disorder [Unknown]
  - Treatment failure [Unknown]
  - Aspartate aminotransferase increased [Unknown]
  - Loss of personal independence in daily activities [Unknown]
  - Drug ineffective [Unknown]
  - Enthesopathy [Unknown]
  - Erythema [Unknown]
  - General physical health deterioration [Unknown]
  - Mobility decreased [Unknown]
  - Therapy non-responder [Unknown]
  - Alanine aminotransferase abnormal [Unknown]
  - Alanine aminotransferase increased [Unknown]
  - Psoriatic arthropathy [Unknown]
